FAERS Safety Report 17813132 (Version 3)
Quarter: 2020Q3

REPORT INFORMATION
  Report Type: Report from Study
  Country: US (occurrence: US)
  Receive Date: 20200521
  Receipt Date: 20200702
  Transmission Date: 20201102
  Serious: Yes (Other)
  Sender: FDA-Public Use
  Company Number: US-EXELIXIS-XL18420029804

PATIENT

DRUGS (6)
  1. NIVOLUMAB [Suspect]
     Active Substance: NIVOLUMAB
     Indication: PAPILLARY RENAL CELL CARCINOMA
     Dosage: 240 MG, Q2WEEKS
     Route: 042
     Dates: start: 20200206, end: 20200511
  2. NIVOLUMAB [Suspect]
     Active Substance: NIVOLUMAB
     Indication: METASTASIS
  3. XL184 [Suspect]
     Active Substance: CABOZANTINIB
     Indication: PAPILLARY RENAL CELL CARCINOMA
     Dosage: 20 MG, QOD
     Route: 048
     Dates: start: 20200206, end: 20200511
  4. PHOSPHA 250 NEUTRAL [Concomitant]
     Active Substance: POTASSIUM PHOSPHATE, MONOBASIC\SODIUM PHOSPHATE, DIBASIC, ANHYDROUS\SODIUM PHOSPHATE, MONOBASIC, MONOHYDRATE
     Dosage: UNK
  5. XL184 [Suspect]
     Active Substance: CABOZANTINIB
     Indication: METASTASIS
  6. HYDROCHLOROTHIAZIDE + LOSARTAN [Concomitant]
     Active Substance: HYDROCHLOROTHIAZIDE\LOSARTAN
     Dosage: UNK

REACTIONS (1)
  - COVID-19 [Recovering/Resolving]

NARRATIVE: CASE EVENT DATE: 20200511
